FAERS Safety Report 9916260 (Version 3)
Quarter: 2014Q2

REPORT INFORMATION
  Report Type: Spontaneous
  Country: BR (occurrence: BR)
  Receive Date: 20140221
  Receipt Date: 20140401
  Transmission Date: 20141212
  Serious: Yes (Disabling, Other)
  Sender: FDA-Public Use
  Company Number: PHHY2014BR018896

PATIENT
  Age: 85 Year
  Sex: Female

DRUGS (23)
  1. GALVUS [Suspect]
     Indication: SINGLE FUNCTIONAL KIDNEY
     Dosage: 2 DF, DAILY
     Route: 048
     Dates: start: 2008
  2. GALVUS [Suspect]
     Indication: OFF LABEL USE
  3. FORASEQ [Suspect]
     Indication: PNEUMONIA
     Dosage: 2 DF, (TWO CAPSULE FROM TREATMENT ONE AND ONE AND TWO CAPSULES FROM TREATMENT TWO)
     Route: 055
  4. FORASEQ [Suspect]
     Indication: LUNG DISORDER
     Dosage: 1 DF, ONE CAPSULE FROM TREATMENT ONE AND ONE CAPSULE FROM TREATMENT TWO
     Route: 055
  5. SIMVASTATIN [Suspect]
     Indication: BLOOD CHOLESTEROL ABNORMAL
     Dosage: 1 DF, DAILY
     Route: 048
     Dates: start: 2008
  6. RANITIDINE [Suspect]
     Indication: GASTROINTESTINAL DISORDER
     Dosage: 2 DF, DAILY
     Route: 048
     Dates: start: 2008
  7. CLOPIDOGREL [Suspect]
     Indication: ANTICOAGULANT THERAPY
     Dosage: 1 DF, DAILY
     Route: 048
     Dates: start: 2008
  8. MONOCORDIL [Suspect]
     Indication: CARDIAC DISORDER
     Dosage: 3 DF, DAILY
     Route: 048
     Dates: start: 2008
  9. ALENIA [Suspect]
     Indication: PNEUMONIA
     Dosage: 2 DF, DAILY
     Route: 055
     Dates: start: 2008
  10. ALENIA [Suspect]
     Indication: LUNG DISORDER
  11. BEROTEC [Suspect]
     Indication: WHEEZING
     Dosage: 3 DROPS (USED WITH MORE FREQUENCY DURING COLD WEATHER)
     Route: 055
     Dates: start: 2008
  12. BEROTEC [Suspect]
     Indication: DYSPNOEA
  13. ATROVENT [Suspect]
     Indication: WHEEZING
     Dosage: 10 DROPS (USED WITH MORE FREQUENCY DURING COLD WEATHER)
     Route: 055
     Dates: start: 2008
  14. ATROVENT [Suspect]
     Indication: DYSPNOEA
  15. APRESOLINA [Suspect]
     Indication: HYPERTENSION
     Dosage: 3 DF, DAILY
     Route: 048
     Dates: start: 2008
  16. PENTOXIFYLLINE [Suspect]
     Dosage: 1 DF, DAILY
     Route: 048
     Dates: start: 2008
  17. ADDERA D3 [Suspect]
     Indication: PHOTOSENSITIVITY REACTION
     Dosage: 10 DROPS, DAILY
     Route: 048
     Dates: start: 2008
  18. MUVINLAX [Suspect]
     Indication: CONSTIPATION
     Dosage: 1 TO 3 SATCHETS WEEKLY
     Route: 048
     Dates: start: 2008
  19. DOMPERIDONE [Suspect]
     Indication: GASTROINTESTINAL DISORDER
     Dosage: 1 DF, DAILY
     Route: 048
     Dates: start: 2008
  20. LANTUS [Suspect]
     Indication: DIABETES MELLITUS
     Dosage: 10 IU, DAILY
     Route: 048
     Dates: start: 2008
  21. LANTUS [Suspect]
     Indication: RENAL DISORDER
  22. TENOFTAL [Suspect]
     Indication: CATARACT
     Dosage: 2 DROPS IN EACH EYE DAILY
     Route: 047
  23. TENOFTAL [Suspect]
     Indication: GLAUCOMA

REACTIONS (5)
  - Fall [Not Recovered/Not Resolved]
  - Hypothermia [Not Recovered/Not Resolved]
  - Gait disturbance [Not Recovered/Not Resolved]
  - Wrong technique in drug usage process [Unknown]
  - Dyskinesia [Not Recovered/Not Resolved]
